FAERS Safety Report 6393114-0 (Version None)
Quarter: 2009Q4

REPORT INFORMATION
  Report Type: 
  Country: None (occurrence: None)
  Receive Date: 20091008
  Receipt Date: 20090930
  Transmission Date: 20100525
  Serious: Yes (Other)
  Sender: FDA-Public Use
  Company Number: US-ASTRAZENECA-2007UW01789

PATIENT
  Age: 37 Year
  Sex: Female
  Weight: 84.4 kg

DRUGS (25)
  1. SEROQUEL [Suspect]
     Indication: SLEEP DISORDER
     Route: 048
     Dates: start: 19970101
  2. SEROQUEL [Suspect]
     Indication: ANXIETY
     Route: 048
     Dates: start: 19970101
  3. SEROQUEL [Suspect]
     Indication: DEPRESSION
     Route: 048
     Dates: start: 19970101
  4. SEROQUEL [Suspect]
     Route: 048
     Dates: start: 20000101
  5. SEROQUEL [Suspect]
     Route: 048
     Dates: start: 20000101
  6. SEROQUEL [Suspect]
     Route: 048
     Dates: start: 20000101
  7. SEROQUEL [Suspect]
     Dosage: 25 MG - 600 MG
     Route: 048
     Dates: start: 20010710
  8. SEROQUEL [Suspect]
     Dosage: 25 MG - 600 MG
     Route: 048
     Dates: start: 20010710
  9. SEROQUEL [Suspect]
     Dosage: 25 MG - 600 MG
     Route: 048
     Dates: start: 20010710
  10. HALDOL [Concomitant]
     Dates: start: 20040101
  11. RISPERDAL [Concomitant]
     Indication: HALLUCINATION
     Dates: start: 19990121
  12. RISPERDAL [Concomitant]
     Dates: start: 19990624, end: 20010420
  13. PAXIL [Concomitant]
     Dates: start: 19990121
  14. BUSPAR [Concomitant]
     Dates: start: 19990121
  15. LASIX [Concomitant]
     Dosage: 40 MG - 80 MG
     Dates: start: 20021108
  16. GLUCOPHAGE XR [Concomitant]
     Dosage: 500 MG - 1000 MG
     Dates: start: 20020221
  17. WELLBUTRIN / WELLBUTRIN SR [Concomitant]
     Dates: start: 19990101
  18. WELLBUTRIN / WELLBUTRIN SR [Concomitant]
     Dosage: 100 MG - 400 MG
     Dates: start: 20010710
  19. LOTENSIN [Concomitant]
     Dates: start: 20010703
  20. ELAVIL [Concomitant]
     Dates: start: 20021108
  21. LIPITOR [Concomitant]
     Dosage: 10 MG - 40 MG
     Dates: start: 20010703
  22. SERZONE [Concomitant]
     Dates: start: 20010120
  23. REGLAN [Concomitant]
     Dates: start: 20021108
  24. SYNTHROID [Concomitant]
     Dosage: 0.2 MG - 0.25 MG
     Dates: start: 19950830
  25. TOPAMAX [Concomitant]
     Dosage: 50 MG 2 AT NIGHT
     Dates: start: 20060101

REACTIONS (18)
  - ARTHRITIS [None]
  - ARTHROPATHY [None]
  - BURSITIS [None]
  - CARPAL TUNNEL SYNDROME [None]
  - DIABETES MELLITUS [None]
  - DIABETIC NEUROPATHY [None]
  - ELBOW OPERATION [None]
  - EPICONDYLITIS [None]
  - FOOT OPERATION [None]
  - MUSCULOSKELETAL PAIN [None]
  - NEUROPATHY PERIPHERAL [None]
  - ROTATOR CUFF REPAIR [None]
  - ROTATOR CUFF SYNDROME [None]
  - SHOULDER OPERATION [None]
  - THROAT CANCER [None]
  - TRIGGER FINGER [None]
  - TYPE 2 DIABETES MELLITUS [None]
  - WRIST SURGERY [None]
